FAERS Safety Report 25050332 (Version 1)
Quarter: 2025Q1

REPORT INFORMATION
  Report Type: Spontaneous
  Country: US (occurrence: None)
  Receive Date: 20250306
  Receipt Date: 20250306
  Transmission Date: 20250409
  Serious: Yes (Other)
  Sender: FDA-CTU
  Company Number: None

PATIENT
  Sex: Female
  Weight: 30.6 kg

DRUGS (21)
  1. ROFLUMILAST [Suspect]
     Active Substance: ROFLUMILAST
     Indication: Chronic obstructive pulmonary disease
  2. ALBUTEROL [Concomitant]
     Active Substance: ALBUTEROL
  3. VENTOLIN [Concomitant]
     Active Substance: ALBUTEROL SULFATE
  4. BREZTRI [Concomitant]
     Active Substance: BUDESONIDE\FORMOTEROL\GLYCOPYRROLATE
  5. ESCITALOPRAM [Concomitant]
     Active Substance: ESCITALOPRAM OXALATE
  6. ENALAPRIL MALEATE [Concomitant]
     Active Substance: ENALAPRIL MALEATE
  7. LOVASTATIN [Concomitant]
     Active Substance: LOVASTATIN
  8. SUCRALFATE [Concomitant]
     Active Substance: SUCRALFATE
  9. PANTOPRAZOLE [Concomitant]
     Active Substance: PANTOPRAZOLE
  10. FAMOTIDINE [Concomitant]
     Active Substance: FAMOTIDINE
  11. MONTELUKAST [Concomitant]
     Active Substance: MONTELUKAST
  12. LORATADINE [Concomitant]
     Active Substance: LORATADINE
  13. VITAMIN D [Concomitant]
     Active Substance: VITAMIN D NOS
  14. FERROUS GLUCONATE [Concomitant]
     Active Substance: FERROUS GLUCONATE
  15. OXYCODONE [Concomitant]
     Active Substance: OXYCODONE
  16. LORAZEPAM [Concomitant]
     Active Substance: LORAZEPAM
  17. DICLOFENAC [Concomitant]
     Active Substance: DICLOFENAC
  18. ACETAMINOPHEN [Concomitant]
     Active Substance: ACETAMINOPHEN
  19. BENADRYL [Concomitant]
     Active Substance: DIPHENHYDRAMINE HYDROCHLORIDE
  20. DEVICE [Concomitant]
     Active Substance: DEVICE
  21. oxygen pump [Concomitant]

REACTIONS (4)
  - Tremor [None]
  - Muscle spasms [None]
  - Anxiety [None]
  - Pyrexia [None]
